FAERS Safety Report 13522500 (Version 1)
Quarter: 2017Q2

REPORT INFORMATION
  Report Type: Spontaneous
  Country: CA (occurrence: CA)
  Receive Date: 20170508
  Receipt Date: 20170508
  Transmission Date: 20170830
  Serious: Yes (Other)
  Sender: FDA-Public Use
  Company Number: CA-SHIRE-CA201709997

PATIENT
  Age: 11 Year
  Sex: Male
  Weight: 34.14 kg

DRUGS (1)
  1. VYVANSE [Suspect]
     Active Substance: LISDEXAMFETAMINE DIMESYLATE
     Indication: PRODUCT USED FOR UNKNOWN INDICATION
     Dosage: UNK, 1X/DAY:QD
     Route: 048

REACTIONS (9)
  - Paranoia [Unknown]
  - Decreased appetite [Unknown]
  - Emotional disorder [Unknown]
  - Personal relationship issue [Unknown]
  - Impulsive behaviour [Unknown]
  - Personality change [Unknown]
  - Thinking abnormal [Unknown]
  - Irritability [Unknown]
  - Unevaluable event [Unknown]
